FAERS Safety Report 19098840 (Version 1)
Quarter: 2021Q2

REPORT INFORMATION
  Report Type: Report from Study
  Country: MX (occurrence: MX)
  Receive Date: 20210406
  Receipt Date: 20210406
  Transmission Date: 20210717
  Serious: Yes (Other)
  Sender: FDA-Public Use
  Company Number: MX-SEATTLE GENETICS-2020SGN03373

PATIENT
  Sex: Male

DRUGS (2)
  1. BRENTUXIMAB VEDOTIN [Suspect]
     Active Substance: BRENTUXIMAB VEDOTIN
     Indication: HODGKIN^S DISEASE
     Dosage: 1.8 MILLIGRAM/KILOGRAM
     Route: 042
     Dates: start: 20200703
  2. BRENTUXIMAB VEDOTIN [Suspect]
     Active Substance: BRENTUXIMAB VEDOTIN
     Dosage: 1.2 MILLIGRAM/KILOGRAM
     Route: 042
     Dates: start: 20210323

REACTIONS (9)
  - Hodgkin^s disease [Unknown]
  - Abdominal pain [Unknown]
  - Vomiting [Unknown]
  - Peripheral sensory neuropathy [Unknown]
  - Weight increased [Recovered/Resolved]
  - Abdominal discomfort [Unknown]
  - Alopecia [Unknown]
  - Dry skin [Unknown]
  - Renal pain [Unknown]
